FAERS Safety Report 8015669-2 (Version None)
Quarter: 2011Q4

REPORT INFORMATION
  Report Type: 
  Country: None (occurrence: None)
  Receive Date: 20111230
  Receipt Date: 20111219
  Transmission Date: 20120403
  Serious: Yes (Death)
  Sender: FDA-Public Use
  Company Number: US-PFIZER INC-2011311450

PATIENT
  Age: 44 Year
  Sex: Female

DRUGS (8)
  1. PROPRANOLOL HCL [Suspect]
  2. ETHANOL [Suspect]
  3. RISPERIDONE [Suspect]
  4. BUPROPION HCL [Suspect]
  5. DIPHENHYDRAMINE HCL [Suspect]
  6. AMLODIPINE BESYLATE [Suspect]
  7. ACETAMINOPHEN [Suspect]
  8. QUETIAPINE [Suspect]

REACTIONS (1)
  - COMPLETED SUICIDE [None]
